FAERS Safety Report 5199523-X (Version None)
Quarter: 2006Q4

REPORT INFORMATION
  Report Type: 
  Country: None (occurrence: None)
  Receive Date: 20061229
  Receipt Date: 20061214
  Transmission Date: 20070319
  Serious: Yes (Hospitalization)
  Sender: FDA-Public Use
  Company Number: 6028223

PATIENT
  Age: 83 Year
  Sex: Female

DRUGS (14)
  1. BISOPROLOL FUMARATE [Suspect]
     Indication: CARDIAC FAILURE
     Dosage: ORAL
     Route: 048
  2. BISOPROLOL FUMARATE [Suspect]
     Indication: OEDEMA
     Dosage: ORAL
     Route: 048
  3. ENALAPRIL MALEATE [Suspect]
     Indication: CARDIAC FAILURE
     Dosage: ORAL
     Route: 048
  4. ENALAPRIL MALEATE [Suspect]
     Indication: OEDEMA
     Dosage: ORAL
     Route: 048
  5. OXYNORM (CAPSULE) (OXYCODONE HYDROCHLORIDE) [Concomitant]
  6. OMEPRAZOLE [Concomitant]
  7. CITALOPRAM HYDROBROMIDE [Concomitant]
  8. PANODIL (COATED TABLET) (PARACETAMOL) [Concomitant]
  9. FURIX (TABLET) (FUROSEMIDE) [Concomitant]
  10. OXASCAND (TABLET) (OXAZEPAM) [Concomitant]
  11. DUROGESIC (TRANSDERMAL PATCH) (FENTANYL) [Concomitant]
  12. ORUDIS GEL 2,5% (GEL) (KETOPROFEN) [Concomitant]
  13. NOVONORM (TABLET) (REPAGLINIDE) [Concomitant]
  14. XERODENT (XYLITOL, MALIC ACID, SODIUM FLUORIDE) [Concomitant]

REACTIONS (4)
  - HYPOTENSION [None]
  - MUSCLE SPASMS [None]
  - PETIT MAL EPILEPSY [None]
  - VERTIGO [None]
